FAERS Safety Report 8005916-5 (Version None)
Quarter: 2011Q4

REPORT INFORMATION
  Report Type: 
  Country: None (occurrence: None)
  Receive Date: 20111223
  Receipt Date: 20111209
  Transmission Date: 20120403
  Serious: Yes (Death)
  Sender: FDA-Public Use
  Company Number: CA-ROCHE-1005261

PATIENT
  Sex: Female
  Weight: 49.486 kg

DRUGS (12)
  1. XELODA [Suspect]
     Indication: RECTAL CANCER
     Route: 048
     Dates: start: 20110428, end: 20110101
  2. ACETAMINOFEN [Concomitant]
  3. VITAMIN D [Concomitant]
  4. ZANTAC [Concomitant]
  5. SINTROM [Concomitant]
  6. INNOHEP [Concomitant]
  7. BIOTENE (UNK INGREDIENTS) [Concomitant]
  8. ATIVAN [Concomitant]
  9. LOPERAMIDE HCL [Concomitant]
  10. CALCIUM [Concomitant]
  11. DIGOXIN [Concomitant]
  12. EYE DROPS NOS [Concomitant]

REACTIONS (1)
  - DISEASE PROGRESSION [None]
